FAERS Safety Report 4996500-6 (Version None)
Quarter: 2006Q2

REPORT INFORMATION
  Report Type: 
  Country: None (occurrence: None)
  Receive Date: 20060509
  Receipt Date: 20060501
  Transmission Date: 20061013
  Serious: Yes (Hospitalization)
  Sender: FDA-Public Use
  Company Number: PHEH2006US05669

PATIENT
  Age: 46 Year
  Sex: Female

DRUGS (3)
  1. FOCALIN XR [Suspect]
     Dosage: 10 MG, QD
     Route: 048
     Dates: start: 20060217, end: 20060220
  2. FOCALIN XR [Suspect]
     Dosage: 20 MG, BID
     Route: 048
     Dates: start: 20060221, end: 20060227
  3. LEXAPRO [Concomitant]

REACTIONS (3)
  - CONVERSION DISORDER [None]
  - DRUG INEFFECTIVE [None]
  - SUICIDAL IDEATION [None]
